FAERS Safety Report 9866980 (Version 1)
Quarter: 2014Q1

REPORT INFORMATION
  Report Type: Spontaneous
  Country: US (occurrence: US)
  Receive Date: 20140204
  Receipt Date: 20140204
  Transmission Date: 20141002
  Serious: Yes (Hospitalization)
  Sender: FDA-Public Use
  Company Number: US-SUN PHARMACEUTICAL INDUSTRIES LTD-2014SUN00142

PATIENT
  Age: 37 Year
  Sex: Female

DRUGS (15)
  1. QUETIAPINE FUMARATE 25MG TABLETS [Suspect]
     Indication: DEPRESSION
     Route: 048
  2. QUETIAPINE FUMARATE 25MG TABLETS [Suspect]
     Indication: OBSESSIVE-COMPULSIVE DISORDER
     Dosage: UNK
     Route: 065
  3. PAROXETINE HYDROCHLORIDE 10 MG TABLET [Suspect]
     Indication: DEPRESSION
     Dosage: UNK
     Route: 048
  4. PAROXETINE HYDROCHLORIDE 10 MG TABLET [Suspect]
     Indication: OBSESSIVE-COMPULSIVE DISORDER
     Dosage: UNK
     Route: 065
  5. CLONAZEPAM 0.5 MG TABLET [Suspect]
     Indication: DEPRESSION
     Route: 048
  6. CLONAZEPAM 0.5 MG TABLET [Suspect]
     Indication: OBSESSIVE-COMPULSIVE DISORDER
  7. FLUOXETINE [Suspect]
     Indication: DEPRESSION
     Route: 048
  8. FLUOXETINE [Suspect]
     Indication: OBSESSIVE-COMPULSIVE DISORDER
     Route: 065
  9. LAMOTRIGINE [Suspect]
     Indication: DEPRESSION
     Route: 065
  10. LAMOTRIGINE [Suspect]
     Indication: OBSESSIVE-COMPULSIVE DISORDER
  11. GLYBURIDE [Concomitant]
     Indication: GESTATIONAL DIABETES
     Route: 048
  12. LORAZEPAM [Concomitant]
     Indication: ANXIETY
     Dosage: UNK
     Route: 065
  13. LORAZEPAM [Concomitant]
     Indication: ACUTE PSYCHOSIS
     Dosage: 2 MG, UNK
     Route: 065
  14. HALOPERIDOL [Concomitant]
     Dosage: 5 MG, UNK
     Route: 051
  15. BENZTROPINE [Concomitant]
     Indication: ACUTE PSYCHOSIS
     Dosage: 1 MG, UNK
     Route: 065

REACTIONS (4)
  - Premature labour [Unknown]
  - Intentional overdose [Recovered/Resolved]
  - Loss of consciousness [Recovered/Resolved]
  - Exposure during pregnancy [Recovered/Resolved]
